FAERS Safety Report 18548435 (Version 3)
Quarter: 2020Q4

REPORT INFORMATION
  Report Type: Spontaneous
  Country: JP (occurrence: JP)
  Receive Date: 20201126
  Receipt Date: 20201211
  Transmission Date: 20210114
  Serious: Yes (Hospitalization, Other)
  Sender: FDA-Public Use
  Company Number: JP-JNJFOC-20201135454

PATIENT
  Sex: Male

DRUGS (1)
  1. ERLEADA [Suspect]
     Active Substance: APALUTAMIDE
     Indication: PROSTATE CANCER
     Route: 048
     Dates: start: 20200902, end: 20201104

REACTIONS (2)
  - Gastric ulcer [Recovering/Resolving]
  - Ileus [Recovering/Resolving]

NARRATIVE: CASE EVENT DATE: 2020
